FAERS Safety Report 6841848-3 (Version None)
Quarter: 2010Q3

REPORT INFORMATION
  Report Type: 
  Country: None (occurrence: None)
  Receive Date: 20100714
  Receipt Date: 20070717
  Transmission Date: 20110219
  Serious: No
  Sender: FDA-Public Use
  Company Number: US-PFIZER INC-2007059471

PATIENT
  Sex: Female
  Weight: 46.7 kg

DRUGS (1)
  1. CHANTIX [Suspect]
     Dates: start: 20070701, end: 20070701

REACTIONS (4)
  - CONSTIPATION [None]
  - DIARRHOEA [None]
  - NAUSEA [None]
  - VOMITING [None]
